FAERS Safety Report 5234177-5 (Version None)
Quarter: 2007Q1

REPORT INFORMATION
  Report Type: 
  Country: None (occurrence: None)
  Receive Date: 20070209
  Receipt Date: 20070129
  Transmission Date: 20070707
  Serious: Yes (Hospitalization, Other)
  Sender: FDA-Public Use
  Company Number: ES-JNJFOC-20070103754

PATIENT
  Age: 21 Year
  Sex: Female
  Weight: 51 kg

DRUGS (2)
  1. REMICADE [Suspect]
     Indication: CROHN'S DISEASE
     Dosage: 9 INFUSIONS ADMINISTERED
     Route: 042
  2. AZATHIOPRINE [Concomitant]
     Route: 065

REACTIONS (2)
  - PULMONARY TUBERCULOSIS [None]
  - PYREXIA [None]
